FAERS Safety Report 6941247-X (Version None)
Quarter: 2010Q3

REPORT INFORMATION
  Report Type: 
  Country: None (occurrence: None)
  Receive Date: 20100825
  Receipt Date: 20100719
  Transmission Date: 20110219
  Serious: No
  Sender: FDA-Public Use
  Company Number: US-BRISTOL-MYERS SQUIBB COMPANY-15198138

PATIENT
  Age: 44 Year
  Sex: Male

DRUGS (7)
  1. ONGLYZA [Suspect]
     Dates: start: 20100712
  2. METFORMIN HCL [Concomitant]
  3. AMARYL [Concomitant]
  4. LISINOPRIL [Concomitant]
  5. AMLODIPINE [Concomitant]
  6. ZOCOR [Concomitant]
  7. SIMVASTATIN [Concomitant]

REACTIONS (1)
  - PRURITUS [None]
